FAERS Safety Report 7079306-6 (Version None)
Quarter: 2010Q4

REPORT INFORMATION
  Report Type: 
  Country: None (occurrence: None)
  Receive Date: 20101102
  Receipt Date: 20101025
  Transmission Date: 20110411
  Serious: Yes (Other)
  Sender: FDA-Public Use
  Company Number: BR-US-EMD SERONO, INC.-7024506

PATIENT
  Sex: Male

DRUGS (2)
  1. REBIF [Suspect]
     Indication: RELAPSING-REMITTING MULTIPLE SCLEROSIS
     Route: 058
     Dates: start: 20100702, end: 20100901
  2. REBIF [Suspect]
     Route: 058
     Dates: start: 20100101

REACTIONS (2)
  - HEPATITIS [None]
  - LABORATORY TEST ABNORMAL [None]
